FAERS Safety Report 9283757 (Version 1)
Quarter: 2013Q2

REPORT INFORMATION
  Report Type: Spontaneous
  Country: US (occurrence: US)
  Receive Date: 20130510
  Receipt Date: 20130510
  Transmission Date: 20140414
  Serious: Yes (Other)
  Sender: FDA-Public Use
  Company Number: PHHY2013US044553

PATIENT
  Age: 30 Year
  Sex: Female

DRUGS (14)
  1. QUETIAPINE [Suspect]
     Dosage: 12.5 MG, IN THE AFTERNOON
  2. QUETIAPINE [Suspect]
     Dosage: 25 MG, AT BED TIME
  3. QUETIAPINE [Suspect]
     Dosage: 25 MG, IN THE MORNING
  4. QUETIAPINE [Suspect]
     Dosage: 25 MG, IN THE AFTERNOON
  5. QUETIAPINE [Suspect]
     Dosage: 50 MG, AT BEDTIME
  6. VANCOMYCIN [Suspect]
     Indication: MENINGITIS
  7. LEVETIRACETAM [Concomitant]
     Indication: CONVULSION
  8. NIMODIPINE [Concomitant]
     Indication: CEREBRAL VASOCONSTRICTION
  9. PRAVASTATIN [Concomitant]
     Indication: BRAIN OEDEMA
  10. PROPOFOL [Concomitant]
  11. FENTANYL [Concomitant]
  12. CLONAZEPAM [Concomitant]
     Indication: ANXIETY
     Dosage: 0.5 MG, BID
  13. MEROPENEM [Concomitant]
     Indication: MENINGITIS
  14. QUETIAPINE [Suspect]
     Indication: ANXIETY
     Dosage: 12.5 MG, IN THE MORNING

REACTIONS (6)
  - Meningitis [Unknown]
  - Delirium [Unknown]
  - Leukopenia [Recovering/Resolving]
  - Leukocytosis [Unknown]
  - Pyrexia [Unknown]
  - Neutropenia [Recovering/Resolving]
